FAERS Safety Report 9990101 (Version 2)
Quarter: 2014Q2

REPORT INFORMATION
  Report Type: Spontaneous
  Country: FR (occurrence: FR)
  Receive Date: 20140310
  Receipt Date: 20140619
  Transmission Date: 20141212
  Serious: Yes (Hospitalization, Disabling)
  Sender: FDA-Public Use
  Company Number: FR-B.I. PHARMACEUTICALS,INC./RIDGEFIELD-2014-BI-09604FF

PATIENT
  Age: 80 Year
  Sex: Female
  Weight: 63 kg

DRUGS (11)
  1. PRADAXA [Suspect]
     Indication: ATRIAL FIBRILLATION
     Dosage: 220 MG
     Route: 048
  2. PRADAXA [Suspect]
     Dosage: 300 MG
     Route: 048
  3. CRESTOR [Concomitant]
     Dosage: 10 MG
     Route: 065
  4. COVERSYL [Concomitant]
     Dosage: 10 MG
     Route: 065
  5. FLECAINE LP [Concomitant]
     Dosage: 150 MG
     Route: 065
  6. PREVISCAN [Concomitant]
     Dosage: 10 MG
     Route: 065
  7. SERETIDE [Concomitant]
     Route: 065
  8. VENTOLINE [Concomitant]
     Route: 065
  9. NASONEX [Concomitant]
     Route: 065
  10. CACIT D3 [Concomitant]
     Route: 065
  11. ACLASTA [Concomitant]
     Route: 065

REACTIONS (2)
  - Ischaemic stroke [Recovered/Resolved]
  - Ischaemic stroke [Recovered/Resolved]
